FAERS Safety Report 10825834 (Version 2)
Quarter: 2015Q1

REPORT INFORMATION
  Report Type: Spontaneous
  Country: US (occurrence: US)
  Receive Date: 20150219
  Receipt Date: 20150219
  Transmission Date: 20150721
  Serious: Yes (Hospitalization, Other)
  Sender: FDA-Public Use
  Company Number: US-DRREDDYS-USA/USA/15/0046041

PATIENT
  Age: 50 Year
  Sex: Male
  Weight: 85.2 kg

DRUGS (1)
  1. HABITROL [Suspect]
     Active Substance: NICOTINE
     Indication: SMOKING CESSATION THERAPY
     Route: 065
     Dates: start: 201411

REACTIONS (2)
  - Cholecystectomy [Unknown]
  - Colon cancer [Unknown]

NARRATIVE: CASE EVENT DATE: 201501
